FAERS Safety Report 19983173 (Version 2)
Quarter: 2021Q4

REPORT INFORMATION
  Report Type: Spontaneous
  Country: US (occurrence: US)
  Receive Date: 20211021
  Receipt Date: 20211101
  Transmission Date: 20220303
  Serious: Yes (Other)
  Sender: FDA-Public Use
  Company Number: US-BAYER-2021A234290

PATIENT
  Age: 17 Year

DRUGS (1)
  1. GADAVIST [Suspect]
     Active Substance: GADOBUTROL
     Dosage: UNK, ONCE
     Route: 042

REACTIONS (4)
  - Anaphylactic reaction [None]
  - Contrast media reaction [None]
  - Contrast media allergy [None]
  - Suspected product contamination [None]

NARRATIVE: CASE EVENT DATE: 20211001
